FAERS Safety Report 5369905-1 (Version None)
Quarter: 2007Q2

REPORT INFORMATION
  Report Type: 
  Country: None (occurrence: None)
  Receive Date: 20070620
  Receipt Date: 20070611
  Transmission Date: 20071010
  Serious: Yes (Other)
  Sender: FDA-Public Use
  Company Number: B0475523A

PATIENT
  Age: 71 Year
  Sex: Female

DRUGS (5)
  1. LITHIUM SALT [Suspect]
     Dosage: 1000 MG,
  2. DIGOXIN [Suspect]
  3. NSAID (FORMULATION UNKNOWN) (NSAID) [Suspect]
  4. CARBAMAZEPINE [Suspect]
  5. FUROSEMIDE [Suspect]

REACTIONS (5)
  - ASTHENIA [None]
  - BRADYCARDIA [None]
  - HYPOTONIA [None]
  - MENTAL DISORDER [None]
  - THERAPEUTIC AGENT TOXICITY [None]
